FAERS Safety Report 15809260 (Version 1)
Quarter: 2019Q1

REPORT INFORMATION
  Report Type: Spontaneous
  Country: US (occurrence: US)
  Receive Date: 20190110
  Receipt Date: 20190110
  Transmission Date: 20190417
  Serious: Yes (Life-Threatening, Hospitalization, Other)
  Sender: FDA-Public Use
  Company Number: US-INTERNATIONAL MEDICATION SYSTEMS, LIMITED-2061077

PATIENT
  Age: 18 Year
  Sex: Female
  Weight: 54.55 kg

DRUGS (4)
  1. NALOXONE (ORAL) [Suspect]
     Active Substance: NALOXONE
     Route: 048
     Dates: start: 201301
  2. ATIVAN [Concomitant]
     Active Substance: LORAZEPAM
     Dates: start: 201301, end: 201301
  3. CLONIDINE. [Concomitant]
     Active Substance: CLONIDINE
     Dates: start: 201301, end: 201301
  4. NALTREXONE [Suspect]
     Active Substance: NALTREXONE
     Route: 048
     Dates: start: 201301, end: 201301

REACTIONS (5)
  - Blood pressure increased [Recovered/Resolved]
  - Drug withdrawal syndrome [Recovered/Resolved]
  - Heart rate increased [Recovered/Resolved]
  - Multiple organ dysfunction syndrome [Recovered/Resolved]
  - Hospitalisation [Recovered/Resolved]

NARRATIVE: CASE EVENT DATE: 201301
